FAERS Safety Report 9603112 (Version 2)
Quarter: 2013Q4

REPORT INFORMATION
  Report Type: Spontaneous
  Country: IT (occurrence: IT)
  Receive Date: 20131007
  Receipt Date: 20131025
  Transmission Date: 20140711
  Serious: Yes (Death, Hospitalization)
  Sender: FDA-Public Use
  Company Number: IT-GLAXOSMITHKLINE-B0927872A

PATIENT
  Age: 67 Year
  Sex: Male

DRUGS (3)
  1. REVOLADE [Suspect]
     Indication: THROMBOCYTOPENIA
     Route: 048
     Dates: start: 20130828, end: 20130906
  2. AMLODIPIN [Concomitant]
     Route: 048
  3. DELTACORTENE [Concomitant]

REACTIONS (6)
  - Acute myocardial infarction [Fatal]
  - Coronary artery thrombosis [Fatal]
  - Ischaemic stroke [Fatal]
  - Cardiogenic shock [Fatal]
  - Respiratory failure [Fatal]
  - Chest pain [Fatal]
